FAERS Safety Report 6132623-6 (Version None)
Quarter: 2009Q1

REPORT INFORMATION
  Report Type: 
  Country: None (occurrence: None)
  Receive Date: 20090324
  Receipt Date: 20090310
  Transmission Date: 20090719
  Serious: Yes (Hospitalization)
  Sender: FDA-Public Use
  Company Number: KV200900302

PATIENT
  Sex: Female

DRUGS (1)
  1. ISOSORBIDE MONONITRATE [Suspect]
     Indication: CHEST DISCOMFORT
     Dosage: ORAL
     Route: 048
     Dates: start: 20080908, end: 20080908

REACTIONS (5)
  - DYSPNOEA [None]
  - FALL [None]
  - LOSS OF CONSCIOUSNESS [None]
  - PULSE ABSENT [None]
  - UNRESPONSIVE TO STIMULI [None]
